FAERS Safety Report 20443744 (Version 1)
Quarter: 2022Q1

REPORT INFORMATION
  Report Type: Spontaneous
  Country: CN (occurrence: CN)
  Receive Date: 20220208
  Receipt Date: 20220208
  Transmission Date: 20220424
  Serious: Yes (Other)
  Sender: FDA-Public Use
  Company Number: CN-PFIZER INC-202200165494

PATIENT
  Age: 81 Year
  Sex: Male
  Weight: 43 kg

DRUGS (9)
  1. CEFOPERAZONE SODIUM\SULBACTAM SODIUM [Suspect]
     Active Substance: CEFOPERAZONE SODIUM\SULBACTAM SODIUM
     Indication: Pneumonia aspiration
     Dosage: 3 G, 2X/DAY
     Route: 041
     Dates: start: 20211217, end: 20211222
  2. ATORVASTATIN CALCIUM [Suspect]
     Active Substance: ATORVASTATIN CALCIUM
     Indication: Arteriosclerosis coronary artery
     Dosage: 20 MG, 1X/DAY
     Route: 048
     Dates: start: 20211211, end: 20211217
  3. BUTYLPHTHALIDE [Suspect]
     Active Substance: BUTYLPHTHALIDE
     Indication: Cerebral infarction
     Dosage: 100 ML, 2X/DAY
     Route: 041
     Dates: start: 20211211, end: 20211217
  4. BUTYLPHTHALIDE [Suspect]
     Active Substance: BUTYLPHTHALIDE
     Indication: Nervous system disorder
  5. MOSAPRIDE CITRATE [Suspect]
     Active Substance: MOSAPRIDE CITRATE
     Indication: Chronic gastritis
     Dosage: BEFORE MEALS
     Route: 048
     Dates: start: 20211211, end: 20211217
  6. MOSAPRIDE CITRATE [Suspect]
     Active Substance: MOSAPRIDE CITRATE
     Indication: Gastrointestinal hypermotility
  7. HERBALS [Suspect]
     Active Substance: HERBALS
     Indication: Benign prostatic hyperplasia
     Dosage: AFTER MEALS
     Route: 048
     Dates: start: 20211211, end: 20211223
  8. HERBALS [Suspect]
     Active Substance: HERBALS
     Dosage: AFTER MEALS
     Route: 048
     Dates: start: 20211211, end: 20211223
  9. SODIUM CHLORIDE [Concomitant]
     Active Substance: SODIUM CHLORIDE
     Indication: Vehicle solution use
     Dosage: 100 ML, 2X/DAY
     Route: 041
     Dates: start: 20211217, end: 20211222

REACTIONS (9)
  - Hepatic function abnormal [Recovering/Resolving]
  - Diarrhoea [Recovering/Resolving]
  - Gamma-glutamyltransferase increased [Recovering/Resolving]
  - Alanine aminotransferase increased [Recovering/Resolving]
  - Aspartate aminotransferase increased [Recovering/Resolving]
  - Drug-induced liver injury [Recovering/Resolving]
  - Blood pressure decreased [Recovering/Resolving]
  - Heart rate decreased [Recovering/Resolving]
  - Dysbiosis [Recovering/Resolving]

NARRATIVE: CASE EVENT DATE: 20211212
